FAERS Safety Report 7054065-1 (Version None)
Quarter: 2010Q4

REPORT INFORMATION
  Report Type: 
  Country: None (occurrence: None)
  Receive Date: 20101015
  Receipt Date: 20101001
  Transmission Date: 20110411
  Serious: Yes (Other)
  Sender: FDA-Public Use
  Company Number: 011290

PATIENT
  Age: 21 Year
  Sex: Female

DRUGS (5)
  1. BUSULFEX [Suspect]
     Indication: STEM CELL TRANSPLANT
     Dosage: 3.2 MG/KG, DAILY DOSE
  2. CYCLOPHOSPHAMIDE [Concomitant]
  3. THYMOGLOBULIN [Concomitant]
  4. METHOTREXATE [Concomitant]
  5. CYCLOSPORIN A (CICLOSPIRIN) [Concomitant]

REACTIONS (10)
  - ACUTE GRAFT VERSUS HOST DISEASE [None]
  - HYPERKERATOSIS [None]
  - ILEUS [None]
  - LEUKOPENIA [None]
  - MUCORMYCOSIS [None]
  - PERITONITIS [None]
  - RECURRENT CANCER [None]
  - SKIN EXFOLIATION [None]
  - SKIN HYPOPIGMENTATION [None]
  - THROMBOCYTOPENIA [None]
